FAERS Safety Report 17907443 (Version 1)
Quarter: 2020Q2

REPORT INFORMATION
  Report Type: Spontaneous
  Country: DE (occurrence: DE)
  Receive Date: 20200617
  Receipt Date: 20200617
  Transmission Date: 20200714
  Serious: Yes (Hospitalization)
  Sender: FDA-Public Use
  Company Number: DE-TEVA-2020-DE-1775141

PATIENT
  Age: 93 Year
  Sex: Female

DRUGS (15)
  1. SPIRONOLACTONE. [Suspect]
     Active Substance: SPIRONOLACTONE
     Dosage: 50 MILLIGRAM DAILY; 1-0-0-0
  2. MARCUMAR [Concomitant]
     Active Substance: PHENPROCOUMON
     Dosage: 3 MG, BY VALUE
  3. SALBUHEXAL FERTIGINHALAT [Concomitant]
     Dosage: NK MG, IF NECESSARY, FINISHED INHALATE
  4. DIGIMERCK PICO 0,05MG [Concomitant]
     Dosage: .05 MILLIGRAM DAILY;  1-0-0-0
  5. NITROLINGUAL [Concomitant]
     Active Substance: NITROGLYCERIN
     Dosage: 14.2 STROKE, IF REQUIRED, ACUTE SPRAY
  6. JELLIN-NEOMYCIN [Concomitant]
     Dosage: 2 DOSAGE FORMS DAILY; 0.25|4.52 MG, 1-0-1-0
  7. MOXONIDIN [Concomitant]
     Active Substance: MOXONIDINE
     Dosage: .2 MILLIGRAM DAILY;  0-0-1-0
  8. METOPROLOL. [Concomitant]
     Active Substance: METOPROLOL
     Dosage: 4 DOSAGE FORMS DAILY; 23.75 MG, 2-0-2-0
  9. TORASEMID [Suspect]
     Active Substance: TORSEMIDE
     Dosage: 20 MILLIGRAM DAILY; 5 MG, 2-0-2-0, UNIT DOSE: 10 MG
  10. METAMIZOL [Concomitant]
     Active Substance: METAMIZOLE SODIUM
     Dosage: 500 MG, IF NECESSARY
  11. ATORVASTATIN [Concomitant]
     Active Substance: ATORVASTATIN
     Dosage: 40 MILLIGRAM DAILY; 0-0-1-0
  12. XIPAMIDE [Suspect]
     Active Substance: XIPAMIDE
     Dosage: 10 MILLIGRAM DAILY;  1-0-0-0
  13. SERTRALIN [Concomitant]
     Active Substance: SERTRALINE HYDROCHLORIDE
     Dosage: 100 MILLIGRAM DAILY; 1-0-0-0
  14. NITRE [Concomitant]
     Dosage: 20 MG, IF NECESSARY
  15. RAMIPRIL. [Concomitant]
     Active Substance: RAMIPRIL
     Dosage: 5 MILLIGRAM DAILY; 0-0-1-0

REACTIONS (2)
  - Pyrexia [Unknown]
  - Dyspnoea [Unknown]
